FAERS Safety Report 9178847 (Version 1)
Quarter: 2013Q1

REPORT INFORMATION
  Report Type: Spontaneous
  Country: FR (occurrence: FR)
  Receive Date: 20130321
  Receipt Date: 20130321
  Transmission Date: 20140127
  Serious: Yes (Life-Threatening, Other)
  Sender: FDA-Public Use
  Company Number: FR-009507513-1303FRA006857

PATIENT
  Age: 57 Year
  Sex: Male

DRUGS (5)
  1. ORGARAN [Suspect]
     Indication: HEPARIN-INDUCED THROMBOCYTOPENIA
     Dosage: UNK
     Dates: start: 20130105, end: 20130116
  2. ORGARAN [Suspect]
     Indication: PULMONARY EMBOLISM
  3. METFORMIN [Concomitant]
  4. EXFORGE [Concomitant]
  5. ALLOPURINOL [Concomitant]

REACTIONS (1)
  - Cerebral haemorrhage [Recovering/Resolving]
